FAERS Safety Report 7973482-6 (Version None)
Quarter: 2011Q4

REPORT INFORMATION
  Report Type: 
  Country: None (occurrence: None)
  Receive Date: 20111213
  Receipt Date: 20111202
  Transmission Date: 20120403
  Serious: Yes (Death, Hospitalization, Other)
  Sender: FDA-Public Use
  Company Number: JP-JNJFOC-20110711713

PATIENT
  Age: 18 Year
  Sex: Male

DRUGS (5)
  1. NEW LULU A [Suspect]
     Indication: BRONCHITIS
     Route: 048
     Dates: start: 20100301, end: 20100301
  2. LEVOFLOXACIN [Suspect]
     Indication: BRONCHITIS
     Route: 048
     Dates: start: 20100313, end: 20100314
  3. ALL OTHER THERAPEUTIC DRUG [Suspect]
     Indication: BRONCHITIS
     Route: 048
     Dates: start: 20100312
  4. ALL OTHER THERAPEUTIC DRUG [Suspect]
     Route: 048
     Dates: start: 20100312, end: 20100312
  5. ROCEPHIN [Concomitant]
     Indication: BRONCHITIS
     Route: 042
     Dates: start: 20100313, end: 20100313

REACTIONS (3)
  - TOXIC EPIDERMAL NECROLYSIS [None]
  - INTERSTITIAL LUNG DISEASE [None]
  - HEPATITIS [None]
